FAERS Safety Report 7272597-8 (Version None)
Quarter: 2011Q1

REPORT INFORMATION
  Report Type: 
  Country: None (occurrence: None)
  Receive Date: 20110127
  Receipt Date: 20110120
  Transmission Date: 20110831
  Serious: Yes (Hospitalization)
  Sender: FDA-Public Use
  Company Number: IND1-FR-2011-0002

PATIENT
  Age: 48 Year
  Sex: Male

DRUGS (3)
  1. INDOMETHACIN [Suspect]
     Indication: MUSCULOSKELETAL PAIN
     Dosage: 150 MG (75 MG,2 IN 1 D) ORAL
     Route: 048
     Dates: start: 20101221, end: 20110111
  2. SULFASALAZINE [Suspect]
     Indication: MUSCULOSKELETAL PAIN
     Dosage: 1500 MG (500 MG,3 IN 1 D) ORAL
     Route: 048
     Dates: start: 20101221, end: 20110111
  3. LEMALINE (CAFFEINE, PARACETAMOL, ATROPA BELLADONA EXTRACT, PAPAVER SOM [Concomitant]

REACTIONS (2)
  - MENINGITIS ASEPTIC [None]
  - DRUG INEFFECTIVE [None]
